FAERS Safety Report 5129988-0 (Version None)
Quarter: 2006Q4

REPORT INFORMATION
  Report Type: 
  Country: None (occurrence: None)
  Receive Date: 20061013
  Receipt Date: 20060929
  Transmission Date: 20070319
  Serious: Yes (Hospitalization)
  Sender: FDA-Public Use
  Company Number: 2006RR-02534

PATIENT
  Age: 65 Year
  Sex: Female

DRUGS (5)
  1. LANSOPRAZOLE [Suspect]
  2. AZATHIOPRINE [Concomitant]
  3. CLARITHROMYCIN [Concomitant]
  4. CO-PROXAMOL [Concomitant]
  5. METRONIDAZOLE [Concomitant]

REACTIONS (14)
  - ACTIVATED PARTIAL THROMBOPLASTIN TIME [None]
  - ANOREXIA [None]
  - BONE MARROW FAILURE [None]
  - CANDIDIASIS [None]
  - DRY MOUTH [None]
  - DYSPHAGIA [None]
  - HEPATOSPLENOMEGALY [None]
  - MALAISE [None]
  - NEUTROPHIL COUNT DECREASED [None]
  - PANCYTOPENIA [None]
  - PHARYNGITIS [None]
  - PYREXIA [None]
  - URINARY TRACT INFECTION BACTERIAL [None]
  - WEIGHT DECREASED [None]
